FAERS Safety Report 20390220 (Version 2)
Quarter: 2022Q1

REPORT INFORMATION
  Report Type: Report from Study
  Country: GB (occurrence: US)
  Receive Date: 20220128
  Receipt Date: 20220201
  Transmission Date: 20220423
  Serious: Yes (Hospitalization, Other)
  Sender: FDA-Public Use
  Company Number: GB-009507513-2201GBR000395

PATIENT
  Age: 70 Year
  Sex: Male

DRUGS (1)
  1. PEMBROLIZUMAB [Suspect]
     Active Substance: PEMBROLIZUMAB
     Dosage: EVERY 6 WEEKS, TOTAL 3 CYCLES
     Route: 042
     Dates: start: 202109, end: 202112

REACTIONS (20)
  - Critical illness [Not Recovered/Not Resolved]
  - Adverse event [Unknown]
  - Adverse event [Unknown]
  - Decreased appetite [Unknown]
  - Weight decreased [Unknown]
  - Parasomnia [Unknown]
  - Gastric disorder [Unknown]
  - Feeding disorder [Unknown]
  - Asthenia [Unknown]
  - Dehydration [Unknown]
  - Vomiting [Unknown]
  - Dysgeusia [Not Recovered/Not Resolved]
  - Parosmia [Not Recovered/Not Resolved]
  - Nausea [Not Recovered/Not Resolved]
  - Abdominal distension [Not Recovered/Not Resolved]
  - Oesophageal disorder [Not Recovered/Not Resolved]
  - Condition aggravated [Not Recovered/Not Resolved]
  - Dysphagia [Not Recovered/Not Resolved]
  - Anosmia [Not Recovered/Not Resolved]
  - Adverse drug reaction [Not Recovered/Not Resolved]

NARRATIVE: CASE EVENT DATE: 20210101
